FAERS Safety Report 25958297 (Version 1)
Quarter: 2025Q4

REPORT INFORMATION
  Report Type: Spontaneous
  Country: EU (occurrence: EU)
  Receive Date: 20251024
  Receipt Date: 20251024
  Transmission Date: 20260118
  Serious: Yes (Death, Hospitalization, Disabling, Congenital Anomaly)
  Sender: ORGANON
  Company Number: EU-ROCHE-10000365559

PATIENT
  Age: 80 Year
  Sex: Male
  Weight: 69 kg

DRUGS (7)
  1. SIMVASTATIN [Suspect]
     Active Substance: SIMVASTATIN
     Indication: Blood cholesterol increased
     Dosage: 40 MILLIGRAM, QD
  2. SIMVASTATIN [Suspect]
     Active Substance: SIMVASTATIN
     Indication: Vitamin supplementation
  3. ZOCOR [Suspect]
     Active Substance: SIMVASTATIN
     Indication: Blood cholesterol increased
     Dosage: 40 MILLIGRAM, QD
  4. ZOCOR [Suspect]
     Active Substance: SIMVASTATIN
     Indication: Vitamin supplementation
  5. ZOCOR [Suspect]
     Active Substance: SIMVASTATIN
     Indication: Intentional product misuse
  6. ZOCOR [Suspect]
     Active Substance: SIMVASTATIN
     Indication: Bacterial infection
  7. BETAMETHASONE DIPROPIONATE [Suspect]
     Active Substance: BETAMETHASONE DIPROPIONATE
     Indication: Swelling
     Dosage: 10 MILLIGRAM, QD

REACTIONS (53)
  - Activated partial thromboplastin time prolonged [Fatal]
  - Iron deficiency anaemia [Fatal]
  - Appendicitis [Fatal]
  - Appendicolith [Fatal]
  - Aortic stenosis [Fatal]
  - Ascites [Fatal]
  - Abdominal distension [Fatal]
  - Abdominal pain [Fatal]
  - Bacteroides infection [Fatal]
  - Blood calcium increased [Fatal]
  - Hyperlipidaemia [Fatal]
  - Blood creatinine increased [Fatal]
  - Blood test abnormal [Fatal]
  - Cardiogenic shock [Fatal]
  - Constipation [Fatal]
  - Chronic obstructive pulmonary disease [Fatal]
  - Condition aggravated [Fatal]
  - Diabetes mellitus [Fatal]
  - Drug hypersensitivity [Fatal]
  - Drug intolerance [Fatal]
  - Drug ineffective [Fatal]
  - End stage renal disease [Fatal]
  - General physical health deterioration [Fatal]
  - Gout [Fatal]
  - Hyperphosphataemia [Fatal]
  - Hypophosphataemia [Fatal]
  - Hypertension [Fatal]
  - Lower respiratory tract infection [Fatal]
  - Lung opacity [Fatal]
  - Multiple organ dysfunction syndrome [Fatal]
  - Musculoskeletal stiffness [Fatal]
  - Myasthenia gravis [Fatal]
  - Nausea [Fatal]
  - Neuralgia [Fatal]
  - Oedema peripheral [Fatal]
  - Pleural effusion [Fatal]
  - Pulmonary embolism [Fatal]
  - Pneumonia [Fatal]
  - Sepsis [Fatal]
  - Dry mouth [Fatal]
  - Sleep disorder [Fatal]
  - Swelling [Fatal]
  - Thrombosis [Fatal]
  - Troponin increased [Fatal]
  - Ulcer [Fatal]
  - Ventricular fibrillation [Fatal]
  - Vomiting [Fatal]
  - Somnolence [Fatal]
  - Total lung capacity decreased [Fatal]
  - Inappropriate schedule of product administration [Fatal]
  - Incorrect route of product administration [Fatal]
  - Off label use [Fatal]
  - Intentional product misuse [Fatal]
